FAERS Safety Report 24828400 (Version 2)
Quarter: 2025Q1

REPORT INFORMATION
  Report Type: Spontaneous
  Country: US (occurrence: US)
  Receive Date: 20250110
  Receipt Date: 20250129
  Transmission Date: 20250409
  Serious: Yes (Hospitalization, Other)
  Sender: ENDO
  Company Number: US-ENDO USA, INC.-2025-000022

PATIENT
  Age: 36 Year
  Sex: Male

DRUGS (2)
  1. AVEED [Suspect]
     Active Substance: TESTOSTERONE UNDECANOATE
     Indication: Testicular failure
     Route: 065
     Dates: start: 2022
  2. AVEED [Suspect]
     Active Substance: TESTOSTERONE UNDECANOATE
     Route: 065
     Dates: start: 20230504

REACTIONS (1)
  - Ventriculo-peritoneal shunt [Recovered/Resolved]

NARRATIVE: CASE EVENT DATE: 20240101
